FAERS Safety Report 6067250-2 (Version None)
Quarter: 2009Q1

REPORT INFORMATION
  Report Type: 
  Country: None (occurrence: None)
  Receive Date: 20090205
  Receipt Date: 20090130
  Transmission Date: 20090719
  Serious: Yes (Other)
  Sender: FDA-Public Use
  Company Number: JP-AVENTIS-200813668JP

PATIENT
  Age: 58 Year
  Sex: Female
  Weight: 60.6 kg

DRUGS (8)
  1. ENOXAPARIN SODIUM [Suspect]
     Route: 058
     Dates: start: 20081118, end: 20081124
  2. PANSPORIN [Concomitant]
     Route: 042
     Dates: start: 20081117, end: 20081121
  3. MEIACT [Concomitant]
     Route: 048
     Dates: start: 20081122, end: 20081128
  4. FERROMIA                           /00023516/ [Concomitant]
     Route: 048
     Dates: start: 20081114
  5. IRZAIM [Concomitant]
     Route: 048
     Dates: start: 20081118
  6. MUCOSTA [Concomitant]
     Dates: start: 20081118
  7. LOXONIN                            /00890701/ [Concomitant]
     Route: 048
     Dates: start: 20081118
  8. PARULEON [Concomitant]
     Route: 048
     Dates: start: 20081115

REACTIONS (4)
  - ALANINE AMINOTRANSFERASE INCREASED [None]
  - ASPARTATE AMINOTRANSFERASE INCREASED [None]
  - HEPATIC FUNCTION ABNORMAL [None]
  - LIVER INJURY [None]
